FAERS Safety Report 24093237 (Version 2)
Quarter: 2024Q3

REPORT INFORMATION
  Report Type: Report from Study
  Country: US (occurrence: US)
  Receive Date: 20240715
  Receipt Date: 20240729
  Transmission Date: 20241017
  Serious: Yes (Other)
  Sender: BIOGEN
  Company Number: US-BIOGEN-2023BI01218910

PATIENT
  Age: 57 Year
  Sex: Female

DRUGS (4)
  1. VUMERITY [Suspect]
     Active Substance: DIROXIMEL FUMARATE
     Indication: Multiple sclerosis
     Dosage: STARTING DOSE
     Route: 050
     Dates: start: 20230705, end: 20230712
  2. VUMERITY [Suspect]
     Active Substance: DIROXIMEL FUMARATE
     Dosage: MAINTENANCE DOSE
     Route: 050
     Dates: start: 20230713
  3. VUMERITY [Suspect]
     Active Substance: DIROXIMEL FUMARATE
     Dosage: RE-STARTED WITH 231 MG 1 CAPSULE TWICE DAILY FOR 7 DAYS
     Route: 050
     Dates: start: 202406
  4. VUMERITY [Suspect]
     Active Substance: DIROXIMEL FUMARATE
     Dosage: 2 CAPSULES BY MOUTH TWICE A DAY STARTING DAY 8 (EXACT DATES UNKNOWN).
     Route: 050
     Dates: start: 2024

REACTIONS (7)
  - Oesophageal candidiasis [Unknown]
  - Product dose omission in error [Unknown]
  - Inflammatory bowel disease [Recovered/Resolved]
  - Abdominal discomfort [Unknown]
  - Diverticulum [Recovered/Resolved]
  - Oral candidiasis [Recovered/Resolved]
  - Diarrhoea [Unknown]

NARRATIVE: CASE EVENT DATE: 20230701
